FAERS Safety Report 21667739 (Version 1)
Quarter: 2022Q4

REPORT INFORMATION
  Report Type: Spontaneous
  Country: US (occurrence: US)
  Receive Date: 20221201
  Receipt Date: 20221201
  Transmission Date: 20230113
  Serious: No
  Sender: FDA-Public Use
  Company Number: US-PFIZER INC-202201340286

PATIENT
  Age: 79 Year
  Sex: Female
  Weight: 48.99 kg

DRUGS (1)
  1. IBRANCE [Suspect]
     Active Substance: PALBOCICLIB
     Dosage: 125 MG, CYCLIC (EVERY DAY FOR THREE WEEKS AND THEN RESTS FOR A WEEK)
     Dates: start: 2022, end: 202211

REACTIONS (4)
  - Respiratory syncytial virus infection [Recovering/Resolving]
  - Hypoacusis [Recovering/Resolving]
  - Ear discomfort [Unknown]
  - Cough [Unknown]

NARRATIVE: CASE EVENT DATE: 20221101
